FAERS Safety Report 14951390 (Version 3)
Quarter: 2019Q1

REPORT INFORMATION
  Report Type: Spontaneous
  Country: HU (occurrence: HU)
  Receive Date: 20180530
  Receipt Date: 20190205
  Transmission Date: 20190417
  Serious: Yes (Hospitalization, Other)
  Sender: FDA-Public Use
  Company Number: HU-MYLANLABS-2018M1033989

PATIENT
  Age: 13 Year
  Sex: Male

DRUGS (10)
  1. FLUTICASONE PROPIONATE/SALMETEROL XINAFOATE [Suspect]
     Active Substance: FLUTICASONE PROPIONATE\SALMETEROL XINAFOATE
     Indication: ASTHMA
  2. MONTELUKAST [Suspect]
     Active Substance: MONTELUKAST SODIUM
     Indication: ASTHMA
  3. DIAPHYLLIN [Suspect]
     Active Substance: AMINOPHYLLINE
     Indication: ASTHMA
  4. BUDESONIDE W/FORMOTEROL [Suspect]
     Active Substance: BUDESONIDE\FORMOTEROL
     Indication: COUGH
     Dosage: UNK RESPIRATORY (INHALATION)
     Route: 055
  5. BUDESONIDE W/FORMOTEROL [Suspect]
     Active Substance: BUDESONIDE\FORMOTEROL
     Indication: ASTHMA
     Dosage: UNK
     Route: 055
  6. FLUTICASONE. [Suspect]
     Active Substance: FLUTICASONE
     Indication: ASTHMA
  7. DIAPHYLLIN [Suspect]
     Active Substance: AMINOPHYLLINE
     Indication: COUGH
     Dosage: UNK
     Route: 065
  8. FLUTICASONE PROPIONATE/SALMETEROL XINAFOATE [Suspect]
     Active Substance: FLUTICASONE PROPIONATE\SALMETEROL XINAFOATE
     Indication: COUGH
     Dosage: UNK
     Route: 065
  9. MONTELUKAST [Suspect]
     Active Substance: MONTELUKAST SODIUM
     Indication: COUGH
     Dosage: UNK
     Route: 048
  10. FLUTICASONE. [Suspect]
     Active Substance: FLUTICASONE
     Indication: COUGH
     Dosage: UNK
     Route: 065

REACTIONS (4)
  - No adverse event [Unknown]
  - Therapeutic response decreased [Unknown]
  - Eosinophilic granulomatosis with polyangiitis [Unknown]
  - Drug ineffective [Unknown]
